FAERS Safety Report 5202774-9 (Version None)
Quarter: 2007Q1

REPORT INFORMATION
  Report Type: 
  Country: None (occurrence: None)
  Receive Date: 20070109
  Receipt Date: 20070108
  Transmission Date: 20070707
  Serious: Yes (Hospitalization, Other)
  Sender: FDA-Public Use
  Company Number: US-SHR-US-2006-027157

PATIENT
  Age: 19 Year
  Sex: Female
  Weight: 59 kg

DRUGS (3)
  1. YASMIN [Suspect]
     Indication: ORAL CONTRACEPTION
     Dosage: 1 TAB(S), 1X/DAY
     Route: 048
     Dates: start: 20040101, end: 20060101
  2. LEXAPRO [Concomitant]
     Dosage: .5 MG, UNK
  3. LORAZEPAM [Concomitant]
     Dosage: 5 MG, UNK

REACTIONS (3)
  - GALLBLADDER PAIN [None]
  - GASTROINTESTINAL DISORDER [None]
  - SCAR [None]
